FAERS Safety Report 17569867 (Version 1)
Quarter: 2020Q1

REPORT INFORMATION
  Report Type: Spontaneous
  Country: ES (occurrence: ES)
  Receive Date: 20200323
  Receipt Date: 20200323
  Transmission Date: 20200409
  Serious: Yes (Other)
  Sender: FDA-Public Use
  Company Number: ES-AUROBINDO-AUR-APL-2020-014171

PATIENT
  Age: 70 Year
  Sex: Female
  Weight: 93 kg

DRUGS (6)
  1. PARACETAMOL [Suspect]
     Active Substance: ACETAMINOPHEN
     Indication: PRODUCT USED FOR UNKNOWN INDICATION
     Dosage: UNK
     Route: 065
  2. METAMIZOLE [Suspect]
     Active Substance: METAMIZOLE
     Indication: PRODUCT USED FOR UNKNOWN INDICATION
     Dosage: UNK
     Route: 065
  3. LEVOTHYROXINE. [Suspect]
     Active Substance: LEVOTHYROXINE
     Indication: HYPOTHYROIDISM
     Dosage: 75 MICROGRAM, ONCE A DAY
     Route: 048
     Dates: start: 20140901
  4. PROLIA [Suspect]
     Active Substance: DENOSUMAB
     Indication: OSTEOPOROSIS
     Dosage: 60 MILLIGRAM, EVERY 6 MONTHS
     Route: 058
     Dates: start: 20180309, end: 20191031
  5. ENALAPRIL [Suspect]
     Active Substance: ENALAPRIL
     Indication: HYPERTENSION
     Dosage: 5 MILLIGRAM, ONCE A DAY
     Route: 048
     Dates: start: 20180901
  6. CALCIUM VITAMIN D [Suspect]
     Active Substance: CALCIUM\VITAMIN D
     Indication: MULTIPLE FRACTURES
     Dosage: 1000/800
     Route: 048
     Dates: start: 20090301

REACTIONS (2)
  - Cystoid macular oedema [Unknown]
  - Retinal detachment [Unknown]

NARRATIVE: CASE EVENT DATE: 201911
